FAERS Safety Report 18284367 (Version 2)
Quarter: 2021Q3

REPORT INFORMATION
  Report Type: Report from Study
  Country: None (occurrence: CA)
  Receive Date: 20200919
  Receipt Date: 20210918
  Transmission Date: 20211014
  Serious: Yes (Hospitalization, Other)
  Sender: FDA-Public Use
  Company Number: CA-ABBVIE-20K-028-3567519-00

PATIENT
  Sex: Female

DRUGS (1)
  1. HUMIRA [Suspect]
     Active Substance: ADALIMUMAB
     Indication: CROHN^S DISEASE
     Route: 058
     Dates: start: 20190703

REACTIONS (18)
  - Abdominal adhesions [Unknown]
  - Intestinal dilatation [Unknown]
  - Volvulus [Unknown]
  - Adverse food reaction [Not Recovered/Not Resolved]
  - Fatigue [Unknown]
  - General physical condition abnormal [Unknown]
  - Bladder prolapse [Unknown]
  - Fatigue [Unknown]
  - Scar [Not Recovered/Not Resolved]
  - Hernia pain [Unknown]
  - Surgery [Unknown]
  - Post procedural complication [Unknown]
  - Flatulence [Not Recovered/Not Resolved]
  - Constipation [Unknown]
  - Dyschezia [Not Recovered/Not Resolved]
  - Rectal stenosis [Not Recovered/Not Resolved]
  - Gastrointestinal sounds abnormal [Not Recovered/Not Resolved]
  - Arthropathy [Not Recovered/Not Resolved]

NARRATIVE: CASE EVENT DATE: 2021
